FAERS Safety Report 14994747 (Version 1)
Quarter: 2018Q2

REPORT INFORMATION
  Report Type: Report from Study
  Country: US (occurrence: US)
  Receive Date: 20180611
  Receipt Date: 20180611
  Transmission Date: 20180711
  Serious: Yes (Life-Threatening)
  Sender: FDA-Public Use
  Company Number: PHEH2018US022645

PATIENT
  Sex: Female

DRUGS (1)
  1. AFINITOR [Suspect]
     Active Substance: EVEROLIMUS
     Indication: PRODUCT USED FOR UNKNOWN INDICATION
     Dosage: 10 MG, (EVERY OTHER DAY)
     Route: 048

REACTIONS (2)
  - General physical health deterioration [Not Recovered/Not Resolved]
  - Therapeutic response decreased [Not Recovered/Not Resolved]
